FAERS Safety Report 5177254-X (Version None)
Quarter: 2006Q4

REPORT INFORMATION
  Report Type: 
  Country: None (occurrence: None)
  Receive Date: 20061218
  Receipt Date: 20061205
  Transmission Date: 20070319
  Serious: Yes (Hospitalization)
  Sender: FDA-Public Use
  Company Number: 2006CG01990

PATIENT
  Age: 53 Year
  Sex: Female

DRUGS (14)
  1. OMEPRAZOLE [Suspect]
     Route: 048
     Dates: start: 19990101
  2. ALLOCHRYSINE [Suspect]
     Route: 030
     Dates: start: 20041115, end: 20060706
  3. ALLOCHRYSINE [Suspect]
     Route: 030
     Dates: start: 20060707
  4. METHOTREXATE [Suspect]
     Route: 048
     Dates: start: 19990720, end: 19991019
  5. METHOTREXATE [Suspect]
     Route: 048
     Dates: start: 19991019, end: 20000119
  6. METHOTREXATE [Suspect]
     Route: 048
     Dates: start: 20000119, end: 20041115
  7. PLAQUENIL [Suspect]
     Dates: start: 19990415, end: 19990720
  8. PLAQUENIL [Suspect]
     Dates: start: 20000418, end: 20041115
  9. ARAVA [Suspect]
     Dosage: TOTAL DOSE = 100 MG
     Route: 048
     Dates: start: 20040907, end: 20040909
  10. ARAVA [Suspect]
     Route: 048
     Dates: start: 20040910, end: 20041115
  11. PROFENID LP [Suspect]
     Route: 048
     Dates: start: 19990301, end: 20000401
  12. PROFENID LP [Suspect]
     Route: 048
     Dates: start: 20000801, end: 20010301
  13. PROFENID LP [Suspect]
     Route: 048
     Dates: start: 20010921
  14. CACIT D3 [Concomitant]

REACTIONS (2)
  - CHRONIC LYMPHOCYTIC LEUKAEMIA [None]
  - LYMPHOCYTOSIS [None]
